FAERS Safety Report 8129013 (Version 3)
Quarter: 2014Q2

REPORT INFORMATION
  Report Type: Spontaneous
  Country: US (occurrence: US)
  Receive Date: 20110909
  Receipt Date: 20140508
  Transmission Date: 20141212
  Serious: Yes (Other)
  Sender: FDA-Public Use
  Company Number: US-BAYER-2011-082615

PATIENT
  Age: 26 Year
  Sex: Female
  Weight: 57 kg

DRUGS (2)
  1. YASMIN [Suspect]
     Dosage: UNK
     Dates: start: 2002, end: 2010
  2. VICODIN [Concomitant]

REACTIONS (4)
  - Cholecystitis chronic [None]
  - Cholelithiasis [None]
  - Diarrhoea [None]
  - Dehydration [None]
